FAERS Safety Report 7880215-0 (Version None)
Quarter: 2011Q4

REPORT INFORMATION
  Report Type: 
  Country: None (occurrence: None)
  Receive Date: 20111101
  Receipt Date: 20100909
  Transmission Date: 20120403
  Serious: No
  Sender: FDA-Public Use
  Company Number: US-BAYER-201033372NA

PATIENT
  Age: 50 Year
  Sex: Female

DRUGS (1)
  1. AVELOX [Suspect]
     Indication: SINUSITIS
     Dosage: 400 MG, QD
     Route: 048
     Dates: start: 20100825, end: 20100825

REACTIONS (6)
  - DYSPNOEA [None]
  - DIZZINESS [None]
  - ANXIETY [None]
  - CONFUSIONAL STATE [None]
  - HYPERHIDROSIS [None]
  - ASTHENIA [None]
